FAERS Safety Report 25735516 (Version 2)
Quarter: 2025Q3

REPORT INFORMATION
  Report Type: Other
  Country: US (occurrence: US)
  Receive Date: 20250828
  Receipt Date: 20250829
  Transmission Date: 20251020
  Serious: Yes (Hospitalization, Other)
  Sender: TRAVERE THERAPEUTICS
  Company Number: US-TRAVERE-2025TVT01456

PATIENT
  Age: 30 Year
  Sex: Female

DRUGS (4)
  1. FILSPARI [Suspect]
     Active Substance: SPARSENTAN
     Indication: IgA nephropathy
     Route: 048
     Dates: start: 20250725, end: 20250814
  2. FILSPARI [Suspect]
     Active Substance: SPARSENTAN
     Indication: Haematuria
  3. DILAUDID [Suspect]
     Active Substance: HYDROMORPHONE HYDROCHLORIDE
  4. TYLENOL [Suspect]
     Active Substance: ACETAMINOPHEN

REACTIONS (6)
  - Influenza [Unknown]
  - Liver function test increased [Recovering/Resolving]
  - IgA nephropathy [Unknown]
  - Condition aggravated [Unknown]
  - Pain [Unknown]
  - Blood urine present [Unknown]

NARRATIVE: CASE EVENT DATE: 20250727
